FAERS Safety Report 6586360-4 (Version None)
Quarter: 2010Q1

REPORT INFORMATION
  Report Type: 
  Country: None (occurrence: None)
  Receive Date: 20100216
  Receipt Date: 20100216
  Transmission Date: 20100710
  Serious: No
  Sender: FDA-Public Use
  Company Number: None

PATIENT
  Sex: Male

DRUGS (1)
  1. CREST PRO-HEALTH ENAMEL SHIELD, 6 OZ., TUBE [Suspect]

REACTIONS (1)
  - ORAL MUCOSAL EXFOLIATION [None]
